FAERS Safety Report 5450339-6 (Version None)
Quarter: 2007Q3

REPORT INFORMATION
  Report Type: 
  Country: None (occurrence: None)
  Receive Date: 20070912
  Receipt Date: 20070831
  Transmission Date: 20080115
  Serious: Yes (Life-Threatening, Hospitalization)
  Sender: FDA-Public Use
  Company Number: DE-PFIZER INC-2007073167

PATIENT
  Sex: Female
  Weight: 57 kg

DRUGS (3)
  1. AROMASIN [Suspect]
     Indication: BREAST CANCER METASTATIC
     Route: 048
  2. PAMIDRONATE DISODIUM [Concomitant]
     Dates: start: 20061103, end: 20070518
  3. ZOMETA [Concomitant]
     Dates: start: 20070615, end: 20070713

REACTIONS (1)
  - HEPATIC FAILURE [None]
